FAERS Safety Report 5480253-1 (Version None)
Quarter: 2007Q4

REPORT INFORMATION
  Report Type: 
  Country: None (occurrence: None)
  Receive Date: 20071003
  Receipt Date: 20070924
  Transmission Date: 20080405
  Serious: Yes (Life-Threatening)
  Sender: FDA-Public Use
  Company Number: GXKR2007GB08305

PATIENT
  Age: 76 Year
  Sex: Female

DRUGS (4)
  1. OMEPRAZOLE [Suspect]
     Dosage: 20 MG
  2. PROPRANOLOL [Suspect]
     Indication: ESSENTIAL TREMOR
     Dosage: 80 MG
  3. DONEPEZIL HCL [Suspect]
     Dosage: 10 MG
  4. ESCITALOPRAM OXALATE [Suspect]
     Dosage: 10 MG

REACTIONS (8)
  - ANXIETY [None]
  - BLOOD PRESSURE INCREASED [None]
  - DRUG INTERACTION [None]
  - ELECTROCARDIOGRAM QT PROLONGED [None]
  - ESSENTIAL TREMOR [None]
  - SINUS BRADYCARDIA [None]
  - SYNCOPE [None]
  - TORSADE DE POINTES [None]
